FAERS Safety Report 5589129-2 (Version None)
Quarter: 2007Q4

REPORT INFORMATION
  Report Type: 
  Country: None (occurrence: None)
  Receive Date: 20071212
  Receipt Date: 20070523
  Transmission Date: 20080405
  Serious: Yes (Other)
  Sender: FDA-Public Use
  Company Number: USA-2007-0027543

PATIENT
  Sex: Female

DRUGS (2)
  1. OXYCONTIN [Suspect]
     Indication: SCIATICA
     Dosage: 40 MG, SEE TEXT, ORAL
     Route: 048
     Dates: start: 20000401
  2. VITAMINS [Concomitant]

REACTIONS (5)
  - DRUG DEPENDENCE [None]
  - FATIGUE [None]
  - INADEQUATE ANALGESIA [None]
  - RHINORRHOEA [None]
  - TREMOR [None]
